FAERS Safety Report 14350816 (Version 3)
Quarter: 2018Q1

REPORT INFORMATION
  Report Type: Spontaneous
  Country: US (occurrence: US)
  Receive Date: 20180104
  Receipt Date: 20180329
  Transmission Date: 20180509
  Serious: Yes (Other)
  Sender: FDA-Public Use
  Company Number: US-JNJFOC-20171236254

PATIENT
  Age: 40 Year
  Sex: Female
  Weight: 88.45 kg

DRUGS (15)
  1. STELARA [Suspect]
     Active Substance: USTEKINUMAB
     Indication: CROHN^S DISEASE
     Route: 042
     Dates: start: 20171006
  2. CLARITIN [Concomitant]
     Active Substance: LORATADINE
     Route: 065
  3. PROMETHAZINE [Concomitant]
     Active Substance: PROMETHAZINE\PROMETHAZINE HYDROCHLORIDE
     Route: 048
  4. VITAMINA B12 [Concomitant]
     Route: 065
  5. OTREXUP [Concomitant]
     Active Substance: METHOTREXATE
     Route: 065
  6. POTASSIUM [Concomitant]
     Active Substance: POTASSIUM
     Route: 065
  7. XANAX [Concomitant]
     Active Substance: ALPRAZOLAM
     Route: 065
  8. METHOTREXATE. [Concomitant]
     Active Substance: METHOTREXATE
     Route: 065
  9. STELARA [Suspect]
     Active Substance: USTEKINUMAB
     Indication: CROHN^S DISEASE
     Route: 042
     Dates: start: 20171211
  10. HYOSCYAMINE SULFATE. [Concomitant]
     Active Substance: HYOSCYAMINE SULFATE
     Route: 048
  11. ONDANSETRON HCL [Concomitant]
     Active Substance: ONDANSETRON HYDROCHLORIDE
     Route: 048
  12. FOLIC ACID. [Concomitant]
     Active Substance: FOLIC ACID
     Route: 065
  13. VENLAFAXINE [Concomitant]
     Active Substance: VENLAFAXINE HYDROCHLORIDE
     Route: 065
  14. METOPROLOL SUCCINATE. [Concomitant]
     Active Substance: METOPROLOL SUCCINATE
     Route: 065
  15. OMEPRAZOLE. [Concomitant]
     Active Substance: OMEPRAZOLE
     Route: 048

REACTIONS (9)
  - Crohn^s disease [Recovering/Resolving]
  - Hysterectomy [Unknown]
  - Pyoderma gangrenosum [Recovered/Resolved]
  - Headache [Unknown]
  - Nasal dryness [Not Recovered/Not Resolved]
  - Dental care [Recovered/Resolved]
  - Pruritus generalised [Recovering/Resolving]
  - Epistaxis [Not Recovered/Not Resolved]
  - Clostridium difficile colitis [Recovering/Resolving]

NARRATIVE: CASE EVENT DATE: 2017
